FAERS Safety Report 25623204 (Version 1)
Quarter: 2025Q3

REPORT INFORMATION
  Report Type: Spontaneous
  Country: US (occurrence: None)
  Receive Date: 20250730
  Receipt Date: 20250730
  Transmission Date: 20251020
  Serious: No
  Sender: FDA-CTU
  Company Number: None

PATIENT
  Age: 39 Year
  Sex: Female
  Weight: 56.25 kg

DRUGS (6)
  1. HADLIMA [Suspect]
     Active Substance: ADALIMUMAB-BWWD
     Indication: Psoriatic arthropathy
     Dates: start: 20250616, end: 20250616
  2. SUMATRIPTAN [Concomitant]
     Active Substance: SUMATRIPTAN
  3. BUSPAR [Concomitant]
     Active Substance: BUSPIRONE HYDROCHLORIDE
  4. DULOXETINE [Concomitant]
     Active Substance: DULOXETINE
  5. VITAMIN D [Concomitant]
     Active Substance: VITAMIN D NOS
  6. Methlyated Folate [Concomitant]

REACTIONS (5)
  - Thermal burn [None]
  - Burning sensation [None]
  - Arthralgia [None]
  - Pain [None]
  - Pain [None]

NARRATIVE: CASE EVENT DATE: 20250616
